FAERS Safety Report 20637624 (Version 1)
Quarter: 2022Q1

REPORT INFORMATION
  Report Type: Spontaneous
  Country: US (occurrence: US)
  Receive Date: 20220325
  Receipt Date: 20220325
  Transmission Date: 20220424
  Serious: Yes (Disabling, Other)
  Sender: FDA-Public Use
  Company Number: US-BECTON DICKINSON-US-BD-21-000187

PATIENT
  Age: 40 Year
  Sex: Male

DRUGS (1)
  1. CHLORAPREP [Suspect]
     Active Substance: CHLORHEXIDINE GLUCONATE\ISOPROPYL ALCOHOL
     Indication: Product used for unknown indication
     Dosage: UNK
     Route: 065

REACTIONS (11)
  - Skin laceration [Recovered/Resolved with Sequelae]
  - Pain [Unknown]
  - Hypoaesthesia [Unknown]
  - Tenderness [Unknown]
  - Temperature intolerance [Unknown]
  - Raynaud^s phenomenon [Unknown]
  - Paraesthesia [Unknown]
  - Discomfort [Unknown]
  - Device malfunction [Unknown]
  - Product quality issue [Unknown]
  - Product package associated injury [Unknown]

NARRATIVE: CASE EVENT DATE: 20190920
